FAERS Safety Report 10688692 (Version 1)
Quarter: 2015Q1

REPORT INFORMATION
  Report Type: Spontaneous
  Country: US (occurrence: US)
  Receive Date: 20150102
  Receipt Date: 20150102
  Transmission Date: 20150720
  Serious: Yes (Death, Other)
  Sender: FDA-Public Use
  Company Number: US-GLAXOSMITHKLINE-US2014GSK043410

PATIENT
  Age: 17 Year
  Sex: Female

DRUGS (9)
  1. THALOMID [Concomitant]
     Active Substance: THALIDOMIDE
  2. RAPAMUNE [Concomitant]
     Active Substance: SIROLIMUS
  3. CALCIUM [Concomitant]
     Active Substance: CALCIUM
  4. ATIVAN [Concomitant]
     Active Substance: LORAZEPAM
  5. VITAMIN D [Concomitant]
     Active Substance: CHOLECALCIFEROL
  6. LEXAPRO [Concomitant]
     Active Substance: ESCITALOPRAM OXALATE
  7. VOTRIENT [Suspect]
     Active Substance: PAZOPANIB HYDROCHLORIDE
     Indication: BONE CANCER
     Dosage: 600 MG, QD
     Dates: start: 20131101, end: 20141224
  8. CELEBREX [Concomitant]
     Active Substance: CELECOXIB
  9. AFINITOR [Concomitant]
     Active Substance: EVEROLIMUS

REACTIONS (1)
  - Death [Fatal]

NARRATIVE: CASE EVENT DATE: 20141224
